FAERS Safety Report 14453312 (Version 4)
Quarter: 2018Q1

REPORT INFORMATION
  Report Type: Spontaneous
  Country: AT (occurrence: AT)
  Receive Date: 20180129
  Receipt Date: 20180314
  Transmission Date: 20180509
  Serious: Yes (Hospitalization)
  Sender: FDA-Public Use
  Company Number: PHHY2017AT199888

PATIENT
  Age: 47 Year
  Sex: Female

DRUGS (35)
  1. TACROLIMUS. [Suspect]
     Active Substance: TACROLIMUS
     Dosage: 3 MG, QD
     Route: 065
     Dates: start: 20160314
  2. TACROLIMUS. [Suspect]
     Active Substance: TACROLIMUS
     Dosage: 12 MG, QD
     Route: 065
     Dates: start: 20160318
  3. TACROLIMUS. [Suspect]
     Active Substance: TACROLIMUS
     Dosage: 6 MG, QD
     Route: 065
     Dates: start: 20160718
  4. AZATHIOPRINE. [Concomitant]
     Active Substance: AZATHIOPRINE
     Indication: IMMUNOSUPPRESSANT DRUG THERAPY
     Dosage: 75 MG, QD
     Route: 065
     Dates: start: 20160407
  5. TACROLIMUS. [Suspect]
     Active Substance: TACROLIMUS
     Dosage: 7 MG, QD
     Route: 065
     Dates: start: 20160316
  6. TACROLIMUS. [Suspect]
     Active Substance: TACROLIMUS
     Dosage: 12 MG, QD
     Route: 065
     Dates: start: 20160323
  7. TACROLIMUS. [Suspect]
     Active Substance: TACROLIMUS
     Dosage: 6 MG, QD
     Route: 065
     Dates: start: 20171120
  8. PREDNISOLONE. [Concomitant]
     Active Substance: PREDNISOLONE
     Indication: IMMUNOSUPPRESSANT DRUG THERAPY
     Dosage: 5 MG, UNK
     Route: 065
     Dates: start: 20160629
  9. TACROLIMUS. [Suspect]
     Active Substance: TACROLIMUS
     Dosage: 5 MG, QD
     Route: 065
     Dates: start: 20160403
  10. TACROLIMUS. [Suspect]
     Active Substance: TACROLIMUS
     Dosage: 6 MG, QD
     Route: 065
     Dates: start: 20160404
  11. TACROLIMUS. [Suspect]
     Active Substance: TACROLIMUS
     Dosage: 8 MG, QD
     Route: 065
     Dates: start: 20160407
  12. TACROLIMUS. [Suspect]
     Active Substance: TACROLIMUS
     Dosage: 5 MG, QD
     Route: 065
     Dates: start: 20160629
  13. TACROLIMUS. [Suspect]
     Active Substance: TACROLIMUS
     Dosage: 7 MG, QD
     Route: 065
     Dates: start: 20161031
  14. TACROLIMUS. [Suspect]
     Active Substance: TACROLIMUS
     Dosage: 4.5 MG, QD
     Route: 065
     Dates: start: 20170717
  15. TACROLIMUS. [Suspect]
     Active Substance: TACROLIMUS
     Dosage: 7 MG, QD
     Route: 065
     Dates: start: 20161110
  16. TACROLIMUS. [Suspect]
     Active Substance: TACROLIMUS
     Dosage: 5 MG, QD
     Route: 065
     Dates: start: 20171009
  17. TACROLIMUS. [Suspect]
     Active Substance: TACROLIMUS
     Dosage: 15 MG, QD
     Route: 065
     Dates: start: 20160321
  18. TACROLIMUS. [Suspect]
     Active Substance: TACROLIMUS
     Dosage: 7 MG, QD
     Route: 065
     Dates: start: 20160327
  19. TACROLIMUS. [Suspect]
     Active Substance: TACROLIMUS
     Dosage: 5 MG, QD
     Route: 065
     Dates: start: 20160330
  20. TACROLIMUS. [Suspect]
     Active Substance: TACROLIMUS
     Dosage: 7 MG, QD
     Route: 065
     Dates: start: 20160810
  21. TACROLIMUS. [Suspect]
     Active Substance: TACROLIMUS
     Dosage: 7 MG, QD
     Route: 065
     Dates: start: 20171031
  22. TACROLIMUS. [Suspect]
     Active Substance: TACROLIMUS
     Dosage: 5 MG, QD
     Route: 065
     Dates: start: 20160315
  23. TACROLIMUS. [Suspect]
     Active Substance: TACROLIMUS
     Dosage: 14 MG, QD
     Route: 065
     Dates: start: 20160319
  24. TACROLIMUS. [Suspect]
     Active Substance: TACROLIMUS
     Dosage: 8 MG, QD
     Route: 065
     Dates: start: 20160326
  25. TACROLIMUS. [Suspect]
     Active Substance: TACROLIMUS
     Dosage: 4.5 MG, QD
     Route: 065
     Dates: start: 20161023
  26. TACROLIMUS. [Suspect]
     Active Substance: TACROLIMUS
     Indication: PROPHYLAXIS AGAINST TRANSPLANT REJECTION
     Dosage: 2.5 MG, QD
     Route: 065
     Dates: start: 20160312
  27. TACROLIMUS. [Suspect]
     Active Substance: TACROLIMUS
     Dosage: 9 MG, QD
     Route: 065
     Dates: start: 20160317
  28. TACROLIMUS. [Suspect]
     Active Substance: TACROLIMUS
     Dosage: 3.5 MG, QD
     Route: 065
     Dates: start: 20160331
  29. TACROLIMUS. [Suspect]
     Active Substance: TACROLIMUS
     Dosage: 4.5 MG, QD
     Route: 065
     Dates: start: 20160717
  30. TACROLIMUS. [Suspect]
     Active Substance: TACROLIMUS
     Dosage: 5 MG, QD
     Route: 065
     Dates: start: 20160919
  31. TACROLIMUS. [Suspect]
     Active Substance: TACROLIMUS
     Dosage: 5 MG, QD
     Route: 065
     Dates: start: 20170403
  32. TACROLIMUS. [Suspect]
     Active Substance: TACROLIMUS
     Dosage: 6 MG, QD
     Route: 065
     Dates: start: 20160329
  33. TACROLIMUS. [Suspect]
     Active Substance: TACROLIMUS
     Dosage: 7 MG, QD
     Route: 065
     Dates: start: 20160531
  34. TACROLIMUS. [Suspect]
     Active Substance: TACROLIMUS
     Dosage: 5 MG, QD
     Route: 065
     Dates: start: 20161009
  35. TACROLIMUS. [Suspect]
     Active Substance: TACROLIMUS
     Dosage: 4.5 MG, QD
     Route: 065
     Dates: start: 20171023

REACTIONS (1)
  - Smear cervix abnormal [Recovered/Resolved]

NARRATIVE: CASE EVENT DATE: 20171019
